FAERS Safety Report 5248657-X (Version None)
Quarter: 2007Q1

REPORT INFORMATION
  Report Type: 
  Country: None (occurrence: None)
  Receive Date: 20070226
  Receipt Date: 20070226
  Transmission Date: 20070707
  Serious: Yes (Other)
  Sender: FDA-Public Use
  Company Number: None

PATIENT
  Sex: Female
  Weight: 68.0396 kg

DRUGS (4)
  1. ZYRTEC [Suspect]
     Indication: HYPERSENSITIVITY
     Dosage: 1 TABLET DAILY IN THE AM PO
     Route: 048
     Dates: start: 19990101, end: 20070220
  2. ZYRTEC [Suspect]
     Indication: NASAL CONGESTION
     Dosage: 1 TABLET DAILY IN THE AM PO
     Route: 048
     Dates: start: 19990101, end: 20070220
  3. ZYRTEC [Suspect]
     Indication: RHINORRHOEA
     Dosage: 1 TABLET DAILY IN THE AM PO
     Route: 048
     Dates: start: 19990101, end: 20070220
  4. ADVAIR DISKUS 100/50 [Suspect]
     Indication: ASTHMA
     Dosage: 1 PUFF TWICE DAILY PO
     Route: 048
     Dates: start: 20000101, end: 20070225

REACTIONS (13)
  - ACNE [None]
  - ANXIETY [None]
  - BRADYPHRENIA [None]
  - CANDIDIASIS [None]
  - CONTUSION [None]
  - FATIGUE [None]
  - FLUID RETENTION [None]
  - JOINT SWELLING [None]
  - MEMORY IMPAIRMENT [None]
  - SKIN ATROPHY [None]
  - SKIN STRIAE [None]
  - VARICOSE VEIN [None]
  - WEIGHT INCREASED [None]
